FAERS Safety Report 6097399-X (Version None)
Quarter: 2009Q1

REPORT INFORMATION
  Report Type: 
  Country: None (occurrence: None)
  Receive Date: 20090227
  Receipt Date: 20080512
  Transmission Date: 20090719
  Serious: Yes (Life-Threatening, Hospitalization, Other)
  Sender: FDA-Public Use
  Company Number: A0712938A

PATIENT
  Age: 63 Year
  Sex: Female
  Weight: 64.1 kg

DRUGS (2)
  1. IMITREX [Suspect]
     Indication: MIGRAINE
     Dosage: 6MG UNKNOWN
     Route: 058
     Dates: end: 20070901
  2. TOPAMAX [Concomitant]
     Dosage: 100MG AT NIGHT

REACTIONS (1)
  - MYOCARDIAL INFARCTION [None]
